FAERS Safety Report 16573399 (Version 2)
Quarter: 2021Q1

REPORT INFORMATION
  Report Type: Spontaneous
  Country: US (occurrence: US)
  Receive Date: 20190715
  Receipt Date: 20210216
  Transmission Date: 20210419
  Serious: No
  Sender: FDA-Public Use
  Company Number: US-INCYTE CORPORATION-2019IN006844

PATIENT

DRUGS (2)
  1. JAKAFI [Suspect]
     Active Substance: RUXOLITINIB
     Dosage: 10 MILLIGRAM, QD
     Route: 048
     Dates: start: 201912
  2. JAKAFI [Suspect]
     Active Substance: RUXOLITINIB
     Dosage: 10MG, UNK
     Route: 065
     Dates: start: 201806

REACTIONS (2)
  - Memory impairment [Unknown]
  - Product availability issue [Unknown]
